FAERS Safety Report 5211615-5 (Version None)
Quarter: 2007Q1

REPORT INFORMATION
  Report Type: 
  Country: None (occurrence: None)
  Receive Date: 20070118
  Receipt Date: 20070111
  Transmission Date: 20070707
  Serious: Yes (Other)
  Sender: FDA-Public Use
  Company Number: US-JNJFOC-20070102594

PATIENT
  Sex: Female
  Weight: 69.85 kg

DRUGS (9)
  1. REMICADE [Suspect]
     Indication: RHEUMATOID ARTHRITIS
     Route: 042
  2. LISINOPRIL [Concomitant]
     Indication: BLOOD PRESSURE
  3. ASCORBIC ACID [Concomitant]
  4. VITAMIN CAP [Concomitant]
  5. CALCIUM [Concomitant]
  6. HYDROCODONE [Concomitant]
     Indication: PAIN
  7. ARAVA [Concomitant]
     Indication: RHEUMATOID ARTHRITIS
  8. IRON [Concomitant]
  9. B12 [Concomitant]

REACTIONS (1)
  - LUPUS-LIKE SYNDROME [None]
